FAERS Safety Report 22337006 (Version 3)
Quarter: 2024Q4

REPORT INFORMATION
  Report Type: Spontaneous
  Country: JP (occurrence: JP)
  Receive Date: 20230518
  Receipt Date: 20241113
  Transmission Date: 20250115
  Serious: Yes (Hospitalization, Other)
  Sender: BRISTOL-MYERS SQUIBB COMPANY
  Company Number: JP-BRISTOL-MYERS SQUIBB COMPANY-2023-066714

PATIENT
  Age: 55 Year
  Sex: Female
  Weight: 55 kg

DRUGS (3)
  1. YERVOY [Suspect]
     Active Substance: IPILIMUMAB
     Indication: Non-small cell lung cancer
     Dosage: 1 COURSE:42 DAYS
     Route: 041
  2. YERVOY [Suspect]
     Active Substance: IPILIMUMAB
     Dosage: 1 COURSE:42 DAYS
  3. OPDIVO [Suspect]
     Active Substance: NIVOLUMAB
     Indication: Non-small cell lung cancer
     Dosage: 1 COURSE:42 DAYS
     Route: 041

REACTIONS (5)
  - Type 1 diabetes mellitus [Unknown]
  - Immune-mediated thyroiditis [Unknown]
  - Immune-mediated adrenal insufficiency [Unknown]
  - Immune-mediated encephalitis [Recovering/Resolving]
  - Diarrhoea [Unknown]
